FAERS Safety Report 7320978-6 (Version None)
Quarter: 2011Q1

REPORT INFORMATION
  Report Type: 
  Country: None (occurrence: None)
  Receive Date: 20110228
  Receipt Date: 20110223
  Transmission Date: 20110831
  Serious: Yes (Hospitalization)
  Sender: FDA-Public Use
  Company Number: CO-ROCHE-761519

PATIENT
  Sex: Female

DRUGS (3)
  1. PREDNISOLONE [Concomitant]
     Dosage: INDICATION: ANTIINFLAMATION
     Route: 048
  2. MIRCERA [Suspect]
     Route: 058
     Dates: start: 20101123
  3. INSULIN [Concomitant]
     Dosage: DRUG NAME: CRISTALINE INSULIN

REACTIONS (1)
  - DIABETIC KETOACIDOSIS [None]
